FAERS Safety Report 9471570 (Version 1)
Quarter: 2013Q3

REPORT INFORMATION
  Report Type: Spontaneous
  Country: US (occurrence: None)
  Receive Date: 20130819
  Receipt Date: 20130819
  Transmission Date: 20140515
  Serious: Yes (Other)
  Sender: FDA-Public Use
  Company Number: SYM-2013-08431

PATIENT
  Age: 66 Year
  Sex: Female

DRUGS (6)
  1. METRONIDAZOLE (METRONIDAZOLE) (METRONIDAZOLE) [Suspect]
     Indication: CLOSTRIDIUM DIFFICILE INFECTION
  2. ASPIRIN (ACETYLSALICYLIC ACID) [Concomitant]
  3. ANTIHYPERTENSIVES (ANTIHYPERTENSIVES) [Concomitant]
  4. SIMVASTATIN (SIMVASTATIN) (SIMVASTATIN) [Concomitant]
  5. ALBUTEROL (SALBUTAMOL) (SALBUTAMOL) [Concomitant]
  6. IPRATROPIUM (IPRATROPIUM) (IPRATROPIUM) [Concomitant]

REACTIONS (4)
  - Leukoencephalopathy [None]
  - Ataxia [None]
  - Dysarthria [None]
  - Parkinsonism [None]
